FAERS Safety Report 17436682 (Version 6)
Quarter: 2020Q2

REPORT INFORMATION
  Report Type: Spontaneous
  Country: US (occurrence: US)
  Receive Date: 20200219
  Receipt Date: 20200610
  Transmission Date: 20200713
  Serious: Yes (Hospitalization, Other)
  Sender: FDA-Public Use
  Company Number: US-SA-2020SA042051

PATIENT

DRUGS (2)
  1. DUPIXENT [Suspect]
     Active Substance: DUPILUMAB
     Indication: ECZEMA
     Dosage: 300 MG, QOW
     Route: 058
     Dates: start: 20200214, end: 2020
  2. DUPIXENT [Suspect]
     Active Substance: DUPILUMAB
     Indication: DERMATITIS ALLERGIC
     Dosage: 300 MG, QOW
     Route: 058
     Dates: start: 2019

REACTIONS (17)
  - Dry skin [Not Recovered/Not Resolved]
  - Cerebral palsy [Unknown]
  - Hospitalisation [Unknown]
  - Confusional state [Unknown]
  - Rash erythematous [Unknown]
  - Muscle twitching [Unknown]
  - Vision blurred [Not Recovered/Not Resolved]
  - Condition aggravated [Unknown]
  - Back pain [Unknown]
  - Muscle spasms [Unknown]
  - Skin exfoliation [Not Recovered/Not Resolved]
  - Product dose omission [Unknown]
  - Pharyngeal swelling [Not Recovered/Not Resolved]
  - Myalgia [Unknown]
  - Rash pruritic [Not Recovered/Not Resolved]
  - Condition aggravated [Not Recovered/Not Resolved]
  - Skin burning sensation [Unknown]

NARRATIVE: CASE EVENT DATE: 202001
